FAERS Safety Report 6912677-7 (Version None)
Quarter: 2010Q3

REPORT INFORMATION
  Report Type: 
  Country: None (occurrence: None)
  Receive Date: 20100806
  Receipt Date: 20081117
  Transmission Date: 20110219
  Serious: No
  Sender: FDA-Public Use
  Company Number: US-PFIZER INC-2008085003

PATIENT
  Age: 56 Year
  Sex: Female

DRUGS (2)
  1. DETROL [Suspect]
     Dates: start: 20080801
  2. OXYBUTYNIN CHLORIDE [Suspect]
     Indication: HYPERTONIC BLADDER
     Dosage: 2 EVERY 1 WEEKS
     Route: 062
     Dates: start: 20080927, end: 20080929

REACTIONS (3)
  - APPLICATION SITE RASH [None]
  - DRUG INEFFECTIVE [None]
  - VISION BLURRED [None]
